FAERS Safety Report 13664879 (Version 1)
Quarter: 2017Q2

REPORT INFORMATION
  Report Type: Spontaneous
  Country: FR (occurrence: FR)
  Receive Date: 20170619
  Receipt Date: 20170619
  Transmission Date: 20170830
  Serious: Yes (Hospitalization)
  Sender: FDA-Public Use
  Company Number: FR-TEVA-777891ROM

PATIENT
  Age: 51 Year
  Sex: Female

DRUGS (5)
  1. VINCRISTINE TEVA [Suspect]
     Active Substance: VINCRISTINE
     Indication: ACUTE LEUKAEMIA
     Dosage: 2 MILLIGRAM DAILY; PROTOCOL GRAALL: 2 MG ON DAY 1, DAY 8, DAY 15 AND DAY 12
     Route: 042
     Dates: start: 20170420, end: 20170511
  2. KIDROLASE 10 000 UI [Suspect]
     Active Substance: ASPARAGINASE
     Indication: ACUTE LEUKAEMIA
     Route: 042
     Dates: start: 20170426, end: 20170513
  3. CERUBIDINE [Suspect]
     Active Substance: DAUNORUBICIN HYDROCHLORIDE
     Indication: ACUTE LEUKAEMIA
     Route: 042
     Dates: start: 20170420, end: 20170504
  4. ENDOXAN [Suspect]
     Active Substance: CYCLOPHOSPHAMIDE
     Indication: ACUTE LEUKAEMIA
     Dosage: 1500 MILLIGRAM DAILY; PROTOCOL GRAALL. 1500 MG (I.E. 750 MG PER SQUARE METERS) ON DAY 1 AND DAY 15
     Route: 042
     Dates: start: 20170420, end: 20170504
  5. MESNA EG [Suspect]
     Active Substance: MESNA
     Indication: PROPHYLAXIS
     Dosage: 1600 MILLIGRAM DAILY;
     Route: 042
     Dates: start: 20170420, end: 20170504

REACTIONS (1)
  - Hepatic steatosis [Not Recovered/Not Resolved]

NARRATIVE: CASE EVENT DATE: 20170506
